FAERS Safety Report 20160194 (Version 1)
Quarter: 2021Q4

REPORT INFORMATION
  Report Type: Spontaneous
  Country: GB (occurrence: GB)
  Receive Date: 20211208
  Receipt Date: 20211208
  Transmission Date: 20220303
  Serious: Yes (Hospitalization)
  Sender: FDA-Public Use
  Company Number: None

PATIENT
  Age: 63 Year
  Sex: Male

DRUGS (10)
  1. NEXAVAR [Suspect]
     Active Substance: SORAFENIB
     Indication: Hepatocellular carcinoma
     Dosage: 400 MG, BID
     Route: 048
  2. CALCIUM CARBONATE\CHOLECALCIFEROL [Concomitant]
     Active Substance: CALCIUM CARBONATE\CHOLECALCIFEROL
     Indication: Ill-defined disorder
     Dosage: UNK
  3. CARVEDILOL [Concomitant]
     Active Substance: CARVEDILOL
     Indication: Ill-defined disorder
     Dosage: UNK
  4. DOXYCYCLINE [Concomitant]
     Active Substance: DOXYCYCLINE
     Indication: Ill-defined disorder
     Dosage: UNK
  5. DYMISTA [Concomitant]
     Active Substance: AZELASTINE HYDROCHLORIDE\FLUTICASONE PROPIONATE
     Indication: Ill-defined disorder
     Dosage: UNK
  6. BECLOMETHASONE\FORMOTEROL [Concomitant]
     Active Substance: BECLOMETHASONE\FORMOTEROL
     Indication: Ill-defined disorder
     Dosage: UNK
  7. FUROSEMIDE SODIUM [Concomitant]
     Active Substance: FUROSEMIDE SODIUM
     Indication: Ill-defined disorder
     Dosage: UNK
  8. DIETARY SUPPLEMENT\HERBALS\MILK THISTLE [Concomitant]
     Active Substance: DIETARY SUPPLEMENT\HERBALS\MILK THISTLE
     Indication: Ill-defined disorder
     Dosage: UNK
  9. OMEPRAZOLE [Concomitant]
     Active Substance: OMEPRAZOLE
     Indication: Ill-defined disorder
     Dosage: UNK
  10. ALBUTEROL [Concomitant]
     Active Substance: ALBUTEROL
     Indication: Ill-defined disorder
     Dosage: UNK

REACTIONS (1)
  - Hepatic encephalopathy [Unknown]
